FAERS Safety Report 12256557 (Version 1)
Quarter: 2016Q2

REPORT INFORMATION
  Report Type: Spontaneous
  Country: BR (occurrence: BR)
  Receive Date: 20160412
  Receipt Date: 20160412
  Transmission Date: 20160815
  Serious: Yes (Hospitalization)
  Sender: FDA-Public Use
  Company Number: BR-ELI_LILLY_AND_COMPANY-BR201604001700

PATIENT
  Sex: Male
  Weight: 77 kg

DRUGS (1)
  1. HUMULIN N [Suspect]
     Active Substance: INSULIN HUMAN
     Indication: BLOOD GLUCOSE INCREASED
     Dosage: UNK, TID
     Route: 058
     Dates: start: 1996

REACTIONS (2)
  - Visual impairment [Not Recovered/Not Resolved]
  - Urinary tract infection [Unknown]
